FAERS Safety Report 6411638-4 (Version None)
Quarter: 2009Q4

REPORT INFORMATION
  Report Type: 
  Country: None (occurrence: None)
  Receive Date: 20091023
  Receipt Date: 20091014
  Transmission Date: 20100525
  Serious: Yes (Death)
  Sender: FDA-Public Use
  Company Number: AR-JNJFOC-20091006275

PATIENT
  Age: 69 Year
  Sex: Female
  Weight: 55 kg

DRUGS (5)
  1. REMICADE [Suspect]
     Indication: RHEUMATOID ARTHRITIS
     Route: 042
     Dates: start: 20060101, end: 20090825
  2. METHOTREXATE [Concomitant]
  3. FOLIC ACID [Concomitant]
  4. BETAMETASONA [Concomitant]
  5. MELOXICAM [Concomitant]

REACTIONS (1)
  - CARDIAC FAILURE [None]
